FAERS Safety Report 8881507 (Version 1)
Quarter: 2012Q4

REPORT INFORMATION
  Report Type: 
  Country: JP (occurrence: JP)
  Receive Date: 20121101
  Receipt Date: 20121101
  Transmission Date: 20130627
  Serious: Yes (Other)
  Sender: FDA-Public Use
  Company Number: JP-PFIZER INC-2012266944

PATIENT
  Age: 36 Year
  Sex: Female

DRUGS (1)
  1. AMLODIN [Suspect]
     Dosage: UNK
     Route: 048

REACTIONS (3)
  - Renal impairment [Unknown]
  - Gestational hypertension [Unknown]
  - Premature labour [Unknown]
